FAERS Safety Report 9628760 (Version 1)
Quarter: 2013Q4

REPORT INFORMATION
  Report Type: Report from Study
  Country: US (occurrence: US)
  Receive Date: 20131017
  Receipt Date: 20131017
  Transmission Date: 20140711
  Serious: Yes (Life-Threatening, Hospitalization)
  Sender: FDA-Public Use
  Company Number: US-009507513-1310USA006480

PATIENT
  Age: 69 Year
  Sex: Female
  Weight: 86.9 kg

DRUGS (12)
  1. VORINOSTAT [Suspect]
     Indication: DIFFUSE LARGE B-CELL LYMPHOMA
     Dosage: 300 MG, QD, DAYS 1-5
     Route: 048
     Dates: start: 20130604, end: 20130608
  2. VORINOSTAT [Suspect]
     Dosage: 300 MG, QD, DAYS 1-5
     Route: 048
     Dates: start: 20130906, end: 20130910
  3. CYCLOPHOSPHAMIDE [Suspect]
     Indication: DIFFUSE LARGE B-CELL LYMPHOMA
     Dosage: 750 MG/M2, OVER 30-60 MINUTES ON DAY 3
     Dates: start: 20130606, end: 20130606
  4. CYCLOPHOSPHAMIDE [Suspect]
     Dosage: 750 MG/M2, OVER 30-60 MINUTES ON DAY 3
     Dates: start: 20130908, end: 20130908
  5. DOXORUBICIN [Suspect]
     Indication: DIFFUSE LARGE B-CELL LYMPHOMA
     Dosage: 50 MG/M2, ONCE ON DAY 3
     Route: 042
     Dates: start: 20130606, end: 20130606
  6. DOXORUBICIN [Suspect]
     Dosage: 50 MG/M2, ONCE ON DAY 3
     Route: 042
     Dates: start: 20130908, end: 20130908
  7. VINCRISTINE [Suspect]
     Indication: DIFFUSE LARGE B-CELL LYMPHOMA
     Dosage: 1.4 MG/M2, ONCE ON DAY 3
     Route: 042
     Dates: start: 20130606, end: 20130606
  8. VINCRISTINE [Suspect]
     Dosage: 1.4 MG/M2, ONCE ON DAY 3
     Route: 042
     Dates: start: 20130908, end: 20130908
  9. PREDNISOLONE [Suspect]
     Indication: DIFFUSE LARGE B-CELL LYMPHOMA
     Dosage: 100 MG, QD ON DAYS 3-7
     Route: 048
     Dates: start: 20130606, end: 20130612
  10. PREDNISOLONE [Suspect]
     Dosage: 100 MG, QD  ON DAYS 3-7
     Route: 048
     Dates: start: 20130908, end: 20130914
  11. RITUXIMAB [Suspect]
     Indication: DIFFUSE LARGE B-CELL LYMPHOMA
     Dosage: 375 MG/M2, ONCE ON DAY 3
     Route: 042
     Dates: start: 20130606, end: 20130606
  12. RITUXIMAB [Suspect]
     Dosage: 375 MG/M2, ONCE ON DAY 3
     Route: 042
     Dates: start: 20130908, end: 20130908

REACTIONS (4)
  - Platelet count decreased [Recovering/Resolving]
  - Neutrophil count decreased [Recovering/Resolving]
  - White blood cell count decreased [Recovering/Resolving]
  - Febrile neutropenia [Recovering/Resolving]
